FAERS Safety Report 16171314 (Version 1)
Quarter: 2019Q2

REPORT INFORMATION
  Report Type: Spontaneous
  Country: US (occurrence: US)
  Receive Date: 20190408
  Receipt Date: 20190408
  Transmission Date: 20190711
  Serious: No
  Sender: FDA-Public Use
  Company Number: US-TARO-2018TAR00584

PATIENT
  Age: 88 Year
  Sex: Male

DRUGS (1)
  1. FLUOROURACIL TOPICAL CREAM USP 5% [Suspect]
     Active Substance: FLUOROURACIL
     Indication: PRECANCEROUS SKIN LESION
     Dosage: APPLY A SMALL AMOUNT TO HEAD AND BACKS OF HANDS, 2X/DAY (MORNING AND NIGHT)
     Route: 061
     Dates: start: 20180805

REACTIONS (2)
  - Application site vesicles [Not Recovered/Not Resolved]
  - Application site irritation [Not Recovered/Not Resolved]

NARRATIVE: CASE EVENT DATE: 20180807
